FAERS Safety Report 6733744-7 (Version None)
Quarter: 2010Q2

REPORT INFORMATION
  Report Type: 
  Country: None (occurrence: None)
  Receive Date: 20100518
  Receipt Date: 20100506
  Transmission Date: 20101027
  Serious: Yes (Hospitalization)
  Sender: FDA-Public Use
  Company Number: 238594K09USA

PATIENT
  Age: 52 Year
  Sex: Female

DRUGS (10)
  1. REBIF [Suspect]
     Indication: MULTIPLE SCLEROSIS
     Dosage: 44 MCG, 3 IN 1 WK, SUBCUTANEOUS
     Route: 058
     Dates: start: 20060908, end: 20090710
  2. REBIF [Suspect]
     Indication: MULTIPLE SCLEROSIS
     Dosage: 44 MCG, 3 IN 1 WK, SUBCUTANEOUS
     Route: 058
     Dates: start: 20090717
  3. ARMOUR THYROID (THYROID) [Concomitant]
  4. RESTORIL [Concomitant]
  5. PROZAC [Concomitant]
  6. PROVIGIL [Concomitant]
  7. OXYCONTIN [Concomitant]
  8. BACLOFEN [Concomitant]
  9. SIMVASTATIN [Concomitant]
  10. LISINOPRIL [Concomitant]

REACTIONS (11)
  - FALL [None]
  - GAIT DISTURBANCE [None]
  - HEADACHE [None]
  - INTERVERTEBRAL DISC PROTRUSION [None]
  - MULTIPLE SCLEROSIS RELAPSE [None]
  - NEUROGENIC BLADDER [None]
  - PYREXIA [None]
  - URINARY RETENTION [None]
  - URINARY TRACT INFECTION [None]
  - VISUAL IMPAIRMENT [None]
  - WALKING AID USER [None]
